FAERS Safety Report 9631396 (Version 1)
Quarter: 2013Q4

REPORT INFORMATION
  Report Type: Spontaneous
  Country: JP (occurrence: None)
  Receive Date: 20131011
  Receipt Date: 20131011
  Transmission Date: 20140711
  Serious: Yes (Death)
  Sender: FDA-Public Use
  Company Number: CO-OR-JP-2013-124

PATIENT
  Age: 50 Year
  Sex: Female

DRUGS (4)
  1. PREDNISOLONE (PREDNISOLONE) [Suspect]
     Indication: CONNECTIVE TISSUE DISORDER
  2. AMPHOTERICIN B [Suspect]
     Indication: BRONCHOPULMONARY ASPERGILLOSIS
  3. METHOTREXATE [Suspect]
  4. LEFLUNOMIDE [Suspect]

REACTIONS (1)
  - Respiratory failure [None]
